FAERS Safety Report 6180211-8 (Version None)
Quarter: 2009Q2

REPORT INFORMATION
  Report Type: 
  Country: None (occurrence: None)
  Receive Date: 20090501
  Receipt Date: 20090420
  Transmission Date: 20091009
  Serious: Yes (Other)
  Sender: FDA-Public Use
  Company Number: 2009AP001602

PATIENT
  Age: 75 Year
  Sex: Female

DRUGS (14)
  1. CLARITHROMYCIN [Suspect]
     Indication: LOWER RESPIRATORY TRACT INFECTION
     Dosage: 500 MG; PO
     Route: 048
     Dates: start: 20090319, end: 20090325
  2. ACETYLSALICYLIC ACID (ACETYLSALICYLIC ACID) [Concomitant]
  3. BETAHISTINE DIHYDROCHLORIDE (BETAHISTINE HYDROCHLORIDE) [Concomitant]
  4. BUMETANIDE [Concomitant]
  5. CALCIUM CARBONATE (CALCIUM CARBONATE) [Concomitant]
  6. CELIPROLOL (CELIPROLOL) [Concomitant]
  7. ISOSORBIDE MONONITRATE [Concomitant]
  8. OMEPRAZOLE [Concomitant]
  9. PRAVASTATIN SODIUM [Concomitant]
  10. SALBUTAMOL (SALBUTAMOL) [Concomitant]
  11. FLUTICASONE PROPIONATE [Concomitant]
  12. SALMETEROL XINAFOATE (SALMETEROL XINAFOATE) [Concomitant]
  13. TIOTROPIUM BROMIDE (TIOTROPIUM BROMIDE) [Concomitant]
  14. CLARITHROMYCIN [Concomitant]

REACTIONS (6)
  - CHRONIC OBSTRUCTIVE PULMONARY DISEASE [None]
  - CONDITION AGGRAVATED [None]
  - DRUG HYPERSENSITIVITY [None]
  - ELECTROCARDIOGRAM QT PROLONGED [None]
  - HYPOKALAEMIA [None]
  - LUNG INFECTION [None]
